FAERS Safety Report 5051818-6 (Version None)
Quarter: 2006Q3

REPORT INFORMATION
  Report Type: 
  Country: None (occurrence: None)
  Receive Date: 20060710
  Receipt Date: 20060626
  Transmission Date: 20061208
  Serious: Yes (Other)
  Sender: FDA-Public Use
  Company Number: 1-14003093

PATIENT
  Age: 32 Year
  Sex: Female

DRUGS (4)
  1. DYNACIN [Suspect]
     Indication: ACNE
     Dosage: BID
     Dates: start: 20051001
  2. MULTIVITAMIN [Concomitant]
  3. ATENOLOL [Concomitant]
  4. WELLBUTRIN [Concomitant]

REACTIONS (2)
  - AUTOIMMUNE THYROIDITIS [None]
  - DRY EYE [None]
